FAERS Safety Report 9159576 (Version 1)
Quarter: 2013Q1

REPORT INFORMATION
  Report Type: Spontaneous
  Country: US (occurrence: None)
  Receive Date: 20130212
  Receipt Date: 20130212
  Transmission Date: 20140127
  Serious: Yes (Other)
  Sender: FDA-Public Use
  Company Number: CIP-2013-00024

PATIENT
  Sex: 0

DRUGS (5)
  1. CARBOPLATIN INJECTION [Suspect]
     Indication: NON-SMALL CELL LUNG CANCER
  2. CARBOPLATIN INJECTION [Suspect]
     Indication: NON-SMALL CELL LUNG CANCER
  3. CARBOPLATIN INJECTION [Suspect]
     Indication: NON-SMALL CELL LUNG CANCER
  4. BEVACIZUMAB (BEVACIZUMAB) [Suspect]
  5. IXABEPILONE [Suspect]

REACTIONS (1)
  - Atrial fibrillation [None]
